FAERS Safety Report 9404123 (Version 1)
Quarter: 2013Q3

REPORT INFORMATION
  Report Type: Spontaneous
  Country: US (occurrence: None)
  Receive Date: 20130716
  Receipt Date: 20130716
  Transmission Date: 20140515
  Serious: Yes (Life-Threatening, Other)
  Sender: FDA-Public Use
  Company Number: None

PATIENT
  Age: 70 Year
  Sex: Female

DRUGS (2)
  1. LOTENSIN [Suspect]
     Dosage: 20MG TO CUT IN HALF FOR 10MG, 1/2 TABLET, ONCE PER DAY, BY MOUTH
     Route: 048
     Dates: start: 20130301, end: 20130706
  2. ESTRACE [Concomitant]

REACTIONS (4)
  - Dry mouth [None]
  - Dizziness [None]
  - Cough [None]
  - Product quality issue [None]
